FAERS Safety Report 6564517-6 (Version None)
Quarter: 2010Q1

REPORT INFORMATION
  Report Type: 
  Country: None (occurrence: None)
  Receive Date: 20100201
  Receipt Date: 20100119
  Transmission Date: 20100710
  Serious: Yes (Other)
  Sender: FDA-Public Use
  Company Number: US-ELI_LILLY_AND_COMPANY-US201001004164

PATIENT
  Sex: Male

DRUGS (3)
  1. CIALIS [Suspect]
     Dosage: 20 MG, AS NEEDED
     Route: 065
  2. NEURONTIN [Concomitant]
     Dosage: UNK, EACH EVENING
     Route: 065
  3. TESTOSTERONE [Concomitant]
     Dosage: UNK, UNKNOWN
     Route: 065

REACTIONS (4)
  - BLOOD TESTOSTERONE DECREASED [None]
  - HYPOGONADISM [None]
  - PROSTATE CANCER [None]
  - VASCULAR INSUFFICIENCY [None]
